FAERS Safety Report 10847558 (Version 2)
Quarter: 2015Q2

REPORT INFORMATION
  Report Type: Spontaneous
  Country: US (occurrence: US)
  Receive Date: 20150220
  Receipt Date: 20150501
  Transmission Date: 20150821
  Serious: No
  Sender: FDA-Public Use
  Company Number: US-PFIZER INC-2015063234

PATIENT
  Age: 66 Year
  Sex: Male
  Weight: 106 kg

DRUGS (14)
  1. GLIPIZIDE. [Concomitant]
     Active Substance: GLIPIZIDE
     Dosage: 5 MG, 2X/DAY
  2. ALPRAZOLAM. [Concomitant]
     Active Substance: ALPRAZOLAM
     Dosage: 1 MG, 3 TIMES DAILY AS NEEDED
  3. ARICEPT [Concomitant]
     Active Substance: DONEPEZIL HYDROCHLORIDE
     Dosage: 25 MG, DAILY
  4. LISINOPRIL. [Concomitant]
     Active Substance: LISINOPRIL
     Dosage: 10 MG, DAILY
  5. SIMVASTATIN. [Concomitant]
     Active Substance: SIMVASTATIN
     Dosage: 20 MG, DAILY
  6. METOPROLOL [Concomitant]
     Active Substance: METOPROLOL
     Dosage: 25 MG, DAILY
  7. NEURONTIN [Suspect]
     Active Substance: GABAPENTIN
     Indication: NEUROPATHY PERIPHERAL
     Dosage: UNK
  8. NAMENDA [Concomitant]
     Active Substance: MEMANTINE HYDROCHLORIDE
     Dosage: 5 MG, DAILY
  9. ACETYLSALICYLIC ACID [Concomitant]
     Active Substance: ASPIRIN
     Dosage: 81 MG, DAILY
  10. OXYCODONE [Concomitant]
     Active Substance: OXYCODONE
     Dosage: 15 MG, 4 TIMES DAILY AS NEEDED
  11. ALBUTEROL. [Concomitant]
     Active Substance: ALBUTEROL
  12. METFORMIN [Concomitant]
     Active Substance: METFORMIN HYDROCHLORIDE
     Dosage: 500 MG, 2X/DAY
  13. DEPAKOTE [Concomitant]
     Active Substance: DIVALPROEX SODIUM
     Dosage: 500 MG, 2X/DAY
  14. OXYGEN. [Concomitant]
     Active Substance: OXYGEN

REACTIONS (1)
  - Drug ineffective for unapproved indication [Unknown]
